FAERS Safety Report 25038070 (Version 1)
Quarter: 2025Q1

REPORT INFORMATION
  Report Type: Spontaneous
  Country: US (occurrence: US)
  Receive Date: 20250304
  Receipt Date: 20250304
  Transmission Date: 20250408
  Serious: Yes (Other)
  Sender: AMERICAN REGENT
  Company Number: US-AMERICAN REGENT INC-2025000881

PATIENT
  Age: 50 Year
  Sex: Male

DRUGS (4)
  1. FOSPHENYTOIN SODIUM [Suspect]
     Active Substance: FOSPHENYTOIN SODIUM
     Indication: Status epilepticus
     Route: 065
  2. TRANEXAMIC ACID [Suspect]
     Active Substance: TRANEXAMIC ACID
     Indication: Spinal anaesthesia
     Route: 037
  3. MIDAZOLAM [Suspect]
     Active Substance: MIDAZOLAM
     Indication: Status epilepticus
     Route: 065
  4. PROPOFOL [Suspect]
     Active Substance: PROPOFOL
     Indication: Status epilepticus
     Route: 065

REACTIONS (8)
  - Status epilepticus [Recovered/Resolved]
  - Drug ineffective [Recovered/Resolved]
  - Memory impairment [Unknown]
  - Muscular weakness [Unknown]
  - Hypotension [Unknown]
  - Incorrect route of product administration [Unknown]
  - Wrong product administered [Unknown]
  - Product use in unapproved indication [Unknown]
